FAERS Safety Report 6607785-4 (Version None)
Quarter: 2010Q1

REPORT INFORMATION
  Report Type: 
  Country: None (occurrence: None)
  Receive Date: 20100225
  Receipt Date: 20100225
  Transmission Date: 20100710
  Serious: Yes (Life-Threatening)
  Sender: FDA-Public Use
  Company Number: None

PATIENT
  Sex: Male
  Weight: 68.0396 kg

DRUGS (1)
  1. ULORIC 40 MG. TAKEDA PHARMA N. AMERICA [Suspect]
     Indication: GOUT
     Dosage: 1 TAB. 40 MG O.D. BY MOUTH ORALLY
     Route: 048
     Dates: start: 20091204, end: 20091214

REACTIONS (3)
  - BLOOD CHOLESTEROL INCREASED [None]
  - CORONARY ARTERY OCCLUSION [None]
  - MYOCARDIAL INFARCTION [None]
